FAERS Safety Report 6550229-1 (Version None)
Quarter: 2010Q1

REPORT INFORMATION
  Report Type: 
  Country: None (occurrence: None)
  Receive Date: 20100125
  Receipt Date: 20100115
  Transmission Date: 20100710
  Serious: Yes (Hospitalization)
  Sender: FDA-Public Use
  Company Number: GXKR2010IT00900

PATIENT
  Sex: Female

DRUGS (2)
  1. LORAZEPAM (NGX) [Suspect]
     Route: 065
  2. GABAPENTIN [Suspect]
     Route: 065

REACTIONS (1)
  - PSYCHOMOTOR RETARDATION [None]
